FAERS Safety Report 13859416 (Version 1)
Quarter: 2017Q3

REPORT INFORMATION
  Report Type: Spontaneous
  Country: US (occurrence: US)
  Receive Date: 20170811
  Receipt Date: 20170811
  Transmission Date: 20171127
  Serious: No
  Sender: FDA-Public Use
  Company Number: US-PERRIGO-17US023946

PATIENT
  Age: 19 Year
  Sex: Female

DRUGS (1)
  1. LORATADINE. [Suspect]
     Active Substance: LORATADINE
     Indication: PRODUCT USED FOR UNKNOWN INDICATION
     Dosage: UNKNOWN, UNKNOWN, FOR 2 DAYS
     Route: 048
     Dates: start: 201705, end: 201705

REACTIONS (3)
  - Arthralgia [Unknown]
  - Pain of skin [Unknown]
  - Rash pruritic [Unknown]

NARRATIVE: CASE EVENT DATE: 201705
